FAERS Safety Report 7907669-5 (Version None)
Quarter: 2011Q4

REPORT INFORMATION
  Report Type: 
  Country: None (occurrence: None)
  Receive Date: 20111109
  Receipt Date: 20111025
  Transmission Date: 20120403
  Serious: Yes (Other)
  Sender: FDA-Public Use
  Company Number: TUK2011A00180

PATIENT
  Sex: Male

DRUGS (6)
  1. DOXAZOSIN MESYLATE [Concomitant]
  2. PRAVASTATIN [Concomitant]
  3. ACTOS [Suspect]
     Indication: DIABETES MELLITUS
     Dosage: (30 MG) ORAL
     Route: 048
     Dates: start: 20080519, end: 20110602
  4. VIAZEM XL (DILTIAZEM HYDROCHLORIDE) [Concomitant]
  5. GLICLAZIDE (GLICLAZIDE) [Concomitant]
  6. CLOPIDOGREL [Concomitant]

REACTIONS (2)
  - BLADDER CANCER [None]
  - OEDEMA PERIPHERAL [None]
